FAERS Safety Report 22653335 (Version 1)
Quarter: 2023Q2

REPORT INFORMATION
  Report Type: Spontaneous
  Country: DE (occurrence: DE)
  Receive Date: 20230629
  Receipt Date: 20230629
  Transmission Date: 20230722
  Serious: Yes (Other)
  Sender: FDA-Public Use
  Company Number: DE-ABBVIE-5308644

PATIENT

DRUGS (14)
  1. HUMIRA [Suspect]
     Active Substance: ADALIMUMAB
     Indication: Crohn^s disease
     Route: 058
     Dates: start: 201607, end: 201705
  2. ENTYVIO [Concomitant]
     Active Substance: VEDOLIZUMAB
     Indication: Product used for unknown indication
     Dates: start: 20170517, end: 201709
  3. ENTYVIO [Concomitant]
     Active Substance: VEDOLIZUMAB
     Indication: Product used for unknown indication
  4. ENTYVIO [Concomitant]
     Active Substance: VEDOLIZUMAB
     Indication: Product used for unknown indication
     Dosage: 300 MILLIGRAM
     Dates: start: 201809
  5. PREDNISOLONE [Concomitant]
     Active Substance: PREDNISOLONE
     Indication: Product used for unknown indication
     Dates: start: 20190315
  6. AZATHIOPRINE [Concomitant]
     Active Substance: AZATHIOPRINE
     Indication: Product used for unknown indication
  7. AMITRIPTYLINE [Concomitant]
     Active Substance: AMITRIPTYLINE
     Indication: Product used for unknown indication
  8. CALCIMAGON D3 UNO [Concomitant]
     Indication: Product used for unknown indication
  9. STELARA [Concomitant]
     Active Substance: USTEKINUMAB
     Indication: Product used for unknown indication
     Dates: start: 20170907
  10. METHOTREXATE [Concomitant]
     Active Substance: METHOTREXATE
     Indication: Product used for unknown indication
  11. TACROLIMUS [Suspect]
     Active Substance: TACROLIMUS
     Indication: Product used for unknown indication
     Dosage: 574 MG/G
     Route: 065
     Dates: start: 201809
  12. TACROLIMUS [Suspect]
     Active Substance: TACROLIMUS
     Indication: Product used for unknown indication
     Route: 065
     Dates: end: 201902
  13. TACROLIMUS [Suspect]
     Active Substance: TACROLIMUS
     Indication: Product used for unknown indication
     Dosage: 1148 MG/G
     Route: 065
  14. QUININE SULFATE [Concomitant]
     Active Substance: QUININE SULFATE
     Indication: Product used for unknown indication

REACTIONS (22)
  - Anal abscess [Unknown]
  - Cachexia [Unknown]
  - Abdominal pain lower [Unknown]
  - Gastrointestinal anastomotic stenosis [Unknown]
  - Osteopenia [Unknown]
  - Asthma [Unknown]
  - Anal abscess [Unknown]
  - Anaemia of chronic disease [Unknown]
  - Secretion discharge [Unknown]
  - Acrochordon [Unknown]
  - Gastrooesophageal reflux disease [Unknown]
  - Pancreatitis [Unknown]
  - Ileostomy [Unknown]
  - Gastrointestinal disorder [Unknown]
  - Intussusception [Unknown]
  - Tremor [Unknown]
  - Malabsorption [Unknown]
  - Haemangioma of liver [Unknown]
  - Aphthous ulcer [Unknown]
  - Neurogenic bowel [Recovering/Resolving]
  - Bloody discharge [Unknown]
  - Haematochezia [Recovered/Resolved]

NARRATIVE: CASE EVENT DATE: 20170501
